FAERS Safety Report 11434322 (Version 2)
Quarter: 2015Q3

REPORT INFORMATION
  Report Type: Spontaneous
  Country: US (occurrence: US)
  Receive Date: 20150831
  Receipt Date: 20150831
  Transmission Date: 20151125
  Serious: No
  Sender: FDA-Public Use
  Company Number: US-TEVA-589496ACC

PATIENT
  Age: 36 Year
  Sex: Female
  Weight: 53.57 kg

DRUGS (2)
  1. PARAGARD T 380A [Suspect]
     Active Substance: COPPER
     Indication: CONTRACEPTION
     Route: 015
     Dates: start: 20150629, end: 20150819
  2. SYNTHROID [Concomitant]
     Active Substance: LEVOTHYROXINE SODIUM
     Indication: HYPOTHYROIDISM

REACTIONS (8)
  - Dysmenorrhoea [Recovered/Resolved]
  - Device expulsion [Recovered/Resolved]
  - Muscle spasms [Recovered/Resolved]
  - Metrorrhagia [Recovered/Resolved]
  - Menorrhagia [Recovered/Resolved]
  - Pelvic discomfort [Not Recovered/Not Resolved]
  - Adnexa uteri pain [Recovered/Resolved]
  - Infection [Unknown]

NARRATIVE: CASE EVENT DATE: 20150629
